FAERS Safety Report 8766850 (Version 1)
Quarter: 2012Q4

REPORT INFORMATION
  Report Type: 
  Country: MX (occurrence: MX)
  Receive Date: 20120904
  Receipt Date: 20120904
  Transmission Date: 20130627
  Serious: Yes (Death, Hospitalization, Other)
  Sender: FDA-Public Use
  Company Number: PHHY2012MX076462

PATIENT
  Age: 68 Year
  Sex: Male

DRUGS (1)
  1. EXFORGE [Suspect]
     Indication: HYPERTENSION
     Dosage: 1 DF (160/5mg) daily
     Dates: start: 20090221, end: 201202

REACTIONS (5)
  - Ventricular fibrillation [Fatal]
  - Aortic stenosis [Fatal]
  - Cough [Unknown]
  - Increased upper airway secretion [Unknown]
  - Myocardial infarction [Unknown]
